FAERS Safety Report 9540666 (Version 2)
Quarter: 2013Q4

REPORT INFORMATION
  Report Type: Spontaneous
  Country: JP (occurrence: JP)
  Receive Date: 20130920
  Receipt Date: 20131023
  Transmission Date: 20140711
  Serious: Yes (Death)
  Sender: FDA-Public Use
  Company Number: JP-UCBSA-097956

PATIENT
  Age: 30 Year
  Sex: Male
  Weight: 70 kg

DRUGS (1)
  1. E KEPPRA [Suspect]
     Indication: EPILEPSY
     Dosage: 250 MG IN THE MORNING, 500 MG IN THE EVENING
     Route: 048
     Dates: start: 20120220, end: 20130826

REACTIONS (2)
  - Completed suicide [Fatal]
  - Somnolence [Unknown]
